FAERS Safety Report 16163357 (Version 1)
Quarter: 2019Q2

REPORT INFORMATION
  Report Type: Spontaneous
  Country: DE (occurrence: DE)
  Receive Date: 20190405
  Receipt Date: 20190405
  Transmission Date: 20190711
  Serious: Yes (Hospitalization)
  Sender: FDA-Public Use
  Company Number: DE-DRREDDYS-GER/GER/19/0109160

PATIENT
  Age: 79 Year
  Sex: Female

DRUGS (4)
  1. LISINOPRIL. [Interacting]
     Active Substance: LISINOPRIL
     Indication: HYPERTENSION
     Dosage: 5 MG/DAY
  2. HYDROCHLOROTHIAZIDE. [Interacting]
     Active Substance: HYDROCHLOROTHIAZIDE
     Indication: HYPERTENSION
     Dosage: 25 MG/DAY
  3. METOPROLOL. [Suspect]
     Active Substance: METOPROLOL
     Indication: HYPERTENSION
     Dosage: 95 MG/DAY
  4. DICLOFENAC [Interacting]
     Active Substance: DICLOFENAC
     Indication: OSTEOARTHRITIS
     Dosage: 75 MG, BID

REACTIONS (7)
  - Malaise [Unknown]
  - Blood creatinine increased [Unknown]
  - Fatigue [Unknown]
  - Drug interaction [Unknown]
  - Renal impairment [Unknown]
  - Blood urea increased [Unknown]
  - Blood potassium increased [Unknown]
